FAERS Safety Report 19576172 (Version 1)
Quarter: 2021Q3

REPORT INFORMATION
  Report Type: Spontaneous
  Country: US (occurrence: US)
  Receive Date: 20210718
  Receipt Date: 20210718
  Transmission Date: 20211014
  Serious: No
  Sender: FDA-Public Use
  Company Number: None

PATIENT
  Age: 46 Year
  Sex: Female
  Weight: 99 kg

DRUGS (4)
  1. AMLODIPINE [Concomitant]
     Active Substance: AMLODIPINE BESYLATE
  2. VALTREX [Concomitant]
     Active Substance: VALACYCLOVIR HYDROCHLORIDE
  3. QWO [Suspect]
     Active Substance: COLLAGENASE CLOSTRIDIUM HISTOLYTICUM-AAES
     Indication: PEAU D^ORANGE
     Dosage: ?          QUANTITY:36 INJECTION(S);OTHER FREQUENCY:12 INJ Q 3 WEEKS;?
     Route: 058
     Dates: start: 20210407, end: 20210526
  4. MULTI VITAMIN [Concomitant]
     Active Substance: VITAMINS

REACTIONS (3)
  - Condition aggravated [None]
  - Injection site discolouration [None]
  - Injection site bruising [None]

NARRATIVE: CASE EVENT DATE: 20210526
